FAERS Safety Report 15264206 (Version 1)
Quarter: 2018Q3

REPORT INFORMATION
  Report Type: Spontaneous
  Country: US (occurrence: US)
  Receive Date: 20180810
  Receipt Date: 20180810
  Transmission Date: 20181010
  Serious: No
  Sender: FDA-Public Use
  Company Number: US-SA-2018SA219065

PATIENT
  Age: 56 Year
  Sex: Male

DRUGS (2)
  1. AUBAGIO [Suspect]
     Active Substance: TERIFLUNOMIDE
     Dosage: 14 MG, BID
  2. AUBAGIO [Suspect]
     Active Substance: TERIFLUNOMIDE
     Dosage: 14 MG, QD

REACTIONS (5)
  - Lymphocyte count abnormal [Unknown]
  - Cognitive disorder [Unknown]
  - Anaemia [Unknown]
  - Haematocrit abnormal [Unknown]
  - Incorrect drug administration duration [Unknown]
